FAERS Safety Report 20732002 (Version 1)
Quarter: 2022Q2

REPORT INFORMATION
  Report Type: Spontaneous
  Country: US (occurrence: US)
  Receive Date: 20220420
  Receipt Date: 20220420
  Transmission Date: 20220720
  Serious: No
  Sender: FDA-Public Use
  Company Number: US-PFIZER INC-202100920310

PATIENT
  Age: 69 Year
  Sex: Male

DRUGS (14)
  1. MORPHINE SULFATE [Suspect]
     Active Substance: MORPHINE SULFATE
     Dosage: UNK
  2. ALBUTEROL\IPRATROPIUM [Concomitant]
     Active Substance: ALBUTEROL\IPRATROPIUM
     Dosage: 3 ML, 4X/DAY, (SIG: 3 ML BY NEBULIZER 4 TIMES A DAY)
  3. COLCHICINE [Concomitant]
     Active Substance: COLCHICINE
     Dosage: 1 DF, 2X/DAY, (SIG: 1 TAB (S) ORALLY TWICE DAILY, NOTES: PRN AT FLARE UP)
     Route: 048
  4. AMITRIPTYLINE HYDROCHLORIDE [Concomitant]
     Active Substance: AMITRIPTYLINE HYDROCHLORIDE
     Dosage: 4 DF, 1X/DAY, (SIG: 4 TABS PO ONCE A DAY AT BEDTIME)
     Route: 048
  5. MELATONIN [Concomitant]
     Active Substance: MELATONIN
     Dosage: 1 DF, 1X/DAY, (SIG: 1 CAP(S) ORALLY ONCE A DAY (AT BEDTIME))
     Route: 048
  6. LORAZEPAM [Concomitant]
     Active Substance: LORAZEPAM
     Dosage: 1 DF, 2X/DAY, (SIG: 1 TAB(S) ORALLY BID PRN)
     Route: 048
  7. LYRICA [Concomitant]
     Active Substance: PREGABALIN
     Dosage: 1 DF, 3X/DAY, (SIG: 1 CAPS(S) ORALLY 3 TIMES A DAY)
     Route: 048
  8. COMBIVENT RESPIMAT [Concomitant]
     Active Substance: ALBUTEROL SULFATE\IPRATROPIUM BROMIDE
     Dosage: 1 DF, 4X/DAY, (SIG: 1 PUFF(S) INHALED 4 TIMES A DAY, NOTES: SAMPLE)
  9. ACETAMINOPHEN\HYDROCODONE [Concomitant]
     Active Substance: ACETAMINOPHEN\HYDROCODONE
     Indication: Pain
     Dosage: 1 DF, 2X/DAY, (SIG: 1 TAB (S) ORALLY BID PRN PAIN)
     Route: 048
     Dates: start: 20210401
  10. ATORVASTATIN [Concomitant]
     Active Substance: ATORVASTATIN
     Dosage: 1 DF, 1X/DAY, (SIG: 1 TAB(S) ORALLY ONCE A DAY)
     Route: 048
  11. METOPROLOL TARTRATE [Concomitant]
     Active Substance: METOPROLOL TARTRATE
     Dosage: 1 DF, 2X/DAY, (SIG: 1 TAB(S) ORALLY 2 TIMES A DAY)
     Route: 048
  12. OMEPRAZOLE [Concomitant]
     Active Substance: OMEPRAZOLE
     Dosage: 1 DF, 2X/DAY, (SIG: 1 CAP(S) ORALLY BID)
     Route: 048
  13. HYDROXYZINE HYDROCHLORIDE [Concomitant]
     Active Substance: HYDROXYZINE HYDROCHLORIDE
     Dosage: 1 DF, 2X/DAY, (SIG: 1 TAB(S) ORALLY EVERY 12 HRS)
     Route: 048
  14. NORCO [Concomitant]
     Active Substance: ACETAMINOPHEN\HYDROCODONE BITARTRATE
     Dosage: UNK

REACTIONS (2)
  - Rash [Unknown]
  - Drug hypersensitivity [Unknown]
